FAERS Safety Report 9331519 (Version 1)
Quarter: 2013Q2

REPORT INFORMATION
  Report Type: Spontaneous
  Country: PT (occurrence: None)
  Receive Date: 20130531
  Receipt Date: 20130531
  Transmission Date: 20140414
  Serious: Yes (Hospitalization)
  Sender: FDA-Public Use
  Company Number: DSM-2013-00508

PATIENT
  Age: 77 Year
  Sex: Female

DRUGS (3)
  1. OLSAR [Suspect]
     Indication: HYPERTENSION
     Route: 048
     Dates: start: 201201, end: 201301
  2. ATORVASTATIN(ATORVASTATIN CALCIUM)^(ATORVASTATIN CALCIUM) [Concomitant]
  3. NEBILET (NEBIVOLOL HYDROCHLORIDE) (NEBIVOLOL HYDROCHLORIDE) [Concomitant]

REACTIONS (6)
  - Ketoacidosis [None]
  - Renal failure acute [None]
  - Shock [None]
  - Bundle branch block left [None]
  - Diarrhoea [None]
  - Malabsorption [None]
